FAERS Safety Report 23075684 (Version 1)
Quarter: 2023Q4

REPORT INFORMATION
  Report Type: Spontaneous
  Country: US (occurrence: US)
  Receive Date: 20231017
  Receipt Date: 20231017
  Transmission Date: 20240110
  Serious: No
  Sender: FDA-Public Use
  Company Number: US-BRISTOL-MYERS SQUIBB COMPANY-2023-144784

PATIENT
  Age: 81 Year
  Sex: Male
  Weight: 72.57 kg

DRUGS (1)
  1. LENALIDOMIDE [Suspect]
     Active Substance: LENALIDOMIDE
     Indication: Plasma cell myeloma
     Dosage: FREQUENCY: D 21-OF 28 DAYS CYCLE
     Route: 048
     Dates: start: 2015

REACTIONS (1)
  - Light chain analysis increased [Recovering/Resolving]
